FAERS Safety Report 11969699 (Version 1)
Quarter: 2016Q1

REPORT INFORMATION
  Report Type: Spontaneous
  Country: US (occurrence: US)
  Receive Date: 20160128
  Receipt Date: 20160128
  Transmission Date: 20160526
  Serious: No
  Sender: FDA-Public Use
  Company Number: US-LPDUSPRD-20150861

PATIENT
  Sex: Male

DRUGS (1)
  1. AMINOCAPROIC ACID INJECTION, USP (9120-25) [Suspect]
     Active Substance: AMINOCAPROIC ACID
     Dosage: DOSE UNKNOWN
     Route: 065

REACTIONS (2)
  - Hypersensitivity [Unknown]
  - Swelling [None]
